FAERS Safety Report 11866057 (Version 1)
Quarter: 2015Q4

REPORT INFORMATION
  Report Type: Spontaneous
  Country: GB (occurrence: GB)
  Receive Date: 20151223
  Receipt Date: 20151223
  Transmission Date: 20160305
  Serious: Yes (Hospitalization)
  Sender: FDA-Public Use
  Company Number: GB-ABBVIE-15P-167-1526557-00

PATIENT
  Age: 15 Year
  Sex: Female

DRUGS (1)
  1. VALPROATE SODIUM. [Suspect]
     Active Substance: VALPROATE SODIUM
     Indication: EPILEPSY
     Route: 048
     Dates: end: 20151204

REACTIONS (3)
  - Pleural effusion [Unknown]
  - Pancreatitis acute [Recovering/Resolving]
  - Localised intraabdominal fluid collection [Recovering/Resolving]

NARRATIVE: CASE EVENT DATE: 20151114
